FAERS Safety Report 4285430-3 (Version None)
Quarter: 2004Q1

REPORT INFORMATION
  Report Type: 
  Country: None (occurrence: None)
  Receive Date: 20040202
  Receipt Date: 20040116
  Transmission Date: 20041129
  Serious: Yes (Life-Threatening, Hospitalization)
  Sender: FDA-Public Use
  Company Number: A-CH2003-03559

PATIENT
  Age: 66 Year
  Sex: Female
  Weight: 74 kg

DRUGS (9)
  1. TRACLEER [Suspect]
     Indication: PULMONARY HYPERTENSION
     Dosage: SEE IMAGE
     Route: 048
     Dates: start: 20030215, end: 20030311
  2. TRACLEER [Suspect]
     Indication: PULMONARY HYPERTENSION
     Dosage: SEE IMAGE
     Route: 048
     Dates: start: 20030312
  3. ILOPROST (ILOPROST) [Concomitant]
  4. WARFARIN SODIUM [Concomitant]
  5. PREDNISOLONE [Concomitant]
  6. CALCIUM (CALCIUM) [Concomitant]
  7. CYANOCOBALAMIN (CYANOCOBALAMIN) [Concomitant]
  8. FELODIPINE [Concomitant]
  9. LEVOTHYROXINE SODIUM [Concomitant]

REACTIONS (8)
  - CARDIAC FAILURE [None]
  - CONDITION AGGRAVATED [None]
  - CYANOSIS [None]
  - DRUG INEFFECTIVE [None]
  - DYSPNOEA EXACERBATED [None]
  - LEFT VENTRICULAR FAILURE [None]
  - PULMONARY HYPERTENSION [None]
  - UPPER RESPIRATORY TRACT INFECTION [None]
